FAERS Safety Report 15871603 (Version 1)
Quarter: 2019Q1

REPORT INFORMATION
  Report Type: Spontaneous
  Country: US (occurrence: US)
  Receive Date: 20190126
  Receipt Date: 20190126
  Transmission Date: 20190417
  Serious: No
  Sender: FDA-Public Use
  Company Number: US-TEVA-2019-US-999540

PATIENT
  Sex: Female

DRUGS (2)
  1. ELIQUIS [Concomitant]
     Active Substance: APIXABAN
     Indication: ANTICOAGULANT THERAPY
     Route: 065
  2. ALENDRONATE SODIUM TABLET ACTAVIS [Suspect]
     Active Substance: ALENDRONATE SODIUM
     Indication: BONE DISORDER
     Dosage: FORM STRENGTH: 70, UNIT NOT PROVIDED
     Route: 065

REACTIONS (3)
  - Pain [Unknown]
  - Bone pain [Unknown]
  - Arthralgia [Unknown]
